FAERS Safety Report 6102094-4 (Version None)
Quarter: 2009Q1

REPORT INFORMATION
  Report Type: 
  Country: None (occurrence: None)
  Receive Date: 20090303
  Receipt Date: 20090303
  Transmission Date: 20090719
  Serious: Yes (Other)
  Sender: FDA-Public Use
  Company Number: None

PATIENT
  Age: 43 Year
  Sex: Male
  Weight: 89.1 kg

DRUGS (8)
  1. CLOZAPINE [Suspect]
     Indication: SCHIZOAFFECTIVE DISORDER
     Dosage: 400 MG HS PO
     Route: 048
     Dates: start: 20081224, end: 20090219
  2. DOCUSATE [Concomitant]
  3. SENNA [Concomitant]
  4. VALSARTAN [Concomitant]
  5. ACETAMOPHEN [Concomitant]
  6. LITHIUM CARBONATE [Concomitant]
  7. LITHIUM CARBONATE [Concomitant]
  8. BENZTROPINE MESYLATE [Concomitant]

REACTIONS (4)
  - MUSCLE CONTRACTIONS INVOLUNTARY [None]
  - RESPIRATORY DISORDER [None]
  - SPEECH DISORDER [None]
  - TIC [None]
